FAERS Safety Report 18707498 (Version 1)
Quarter: 2021Q1

REPORT INFORMATION
  Report Type: Spontaneous
  Country: US (occurrence: US)
  Receive Date: 20210106
  Receipt Date: 20210106
  Transmission Date: 20210419
  Serious: Yes (Hospitalization)
  Sender: FDA-Public Use
  Company Number: US-MYLANLABS-2021M1000301

PATIENT
  Age: 28 Year
  Sex: Male

DRUGS (4)
  1. CISPLATIN. [Suspect]
     Active Substance: CISPLATIN
     Indication: TESTIS CANCER
     Route: 065
  2. CISPLATIN. [Suspect]
     Active Substance: CISPLATIN
     Indication: METASTASES TO LUNG
  3. PAROXETINE. [Suspect]
     Active Substance: PAROXETINE
     Indication: METASTASES TO LUNG
  4. PAROXETINE. [Suspect]
     Active Substance: PAROXETINE
     Indication: TESTIS CANCER
     Route: 065

REACTIONS (2)
  - Renal salt-wasting syndrome [Unknown]
  - Off label use [Unknown]
